FAERS Safety Report 23334604 (Version 2)
Quarter: 2024Q1

REPORT INFORMATION
  Report Type: Other
  Country: US (occurrence: US)
  Receive Date: 20231224
  Receipt Date: 20240101
  Transmission Date: 20240409
  Serious: Yes (Hospitalization, Other)
  Sender: FDA-Public Use
  Company Number: US-TRAVERE-2023TVT00623

PATIENT
  Age: 22 Year
  Sex: Male

DRUGS (12)
  1. CHOLBAM [Suspect]
     Active Substance: CHOLIC ACID
     Indication: Refsum^s disease
     Route: 048
     Dates: start: 20160720
  2. CLONAZEPAM [Concomitant]
     Active Substance: CLONAZEPAM
  3. CYPROHEPTADINE [Concomitant]
     Active Substance: CYPROHEPTADINE
  4. ferrous sulfate er [Concomitant]
  5. LEVOCARNITINE [Concomitant]
     Active Substance: LEVOCARNITINE
  6. METOPROLOL [Concomitant]
     Active Substance: METOPROLOL
  7. mvi with fa [Concomitant]
  8. OLANZAPINE [Concomitant]
     Active Substance: OLANZAPINE
  9. VITAMIN K [Concomitant]
     Active Substance: PHYTONADIONE
  10. ZINC GLUCONATE [Concomitant]
     Active Substance: ZINC GLUCONATE
  11. CARVEDILOL [Concomitant]
     Active Substance: CARVEDILOL
  12. MIRTAZAPINE [Concomitant]
     Active Substance: MIRTAZAPINE

REACTIONS (5)
  - Heart rate increased [Unknown]
  - Dysuria [Unknown]
  - Hepatic fibrosis [Unknown]
  - Tremor [Unknown]
  - Varices oesophageal [Unknown]
